FAERS Safety Report 7325726-1 (Version None)
Quarter: 2011Q1

REPORT INFORMATION
  Report Type: 
  Country: None (occurrence: None)
  Receive Date: 20110302
  Receipt Date: 20110225
  Transmission Date: 20110831
  Serious: Yes (Death, Other)
  Sender: FDA-Public Use
  Company Number: NO-ASTRAZENECA-2011SE10873

PATIENT
  Age: 72 Year
  Sex: Female

DRUGS (11)
  1. SERETIDE DISKUS [Concomitant]
  2. METOPROLOL TARTRATE [Concomitant]
     Route: 048
  3. DIURAL [Concomitant]
  4. DIGITOXIN [Concomitant]
  5. GLUCOPHAGE [Interacting]
     Indication: TYPE 2 DIABETES MELLITUS
     Route: 048
     Dates: end: 20090701
  6. ZYRTEC [Concomitant]
  7. VIVAL [Concomitant]
     Dosage: AS NEEDED
  8. ZESTRIL [Suspect]
     Route: 048
     Dates: end: 20090701
  9. ALLOPUR [Concomitant]
  10. LEVOTHYROXINE SODIUM [Concomitant]
  11. WARFARIN SODIUM [Concomitant]
     Dosage: AS PER SCHEDULE

REACTIONS (4)
  - DEATH [None]
  - LACTIC ACIDOSIS [None]
  - DRUG INTERACTION [None]
  - RENAL FAILURE [None]
